FAERS Safety Report 5635790-3 (Version None)
Quarter: 2008Q1

REPORT INFORMATION
  Report Type: 
  Country: None (occurrence: None)
  Receive Date: 20080221
  Receipt Date: 20080213
  Transmission Date: 20080703
  Serious: Yes (Death)
  Sender: FDA-Public Use
  Company Number: L07-AUT-05676-01

PATIENT
  Age: 75 Year
  Sex: Female
  Weight: 47 kg

DRUGS (6)
  1. CITALOPRAM HYDROBROMIDE [Suspect]
  2. DIGITOXIN INJ [Suspect]
  3. BISOPROLOL FUMARATE [Suspect]
  4. PROTHIPENDYL [Suspect]
  5. ACETYLCYSTEINE [Suspect]
  6. PANTOPRAZOLE [Suspect]

REACTIONS (5)
  - LOSS OF CONSCIOUSNESS [None]
  - PULMONARY EMBOLISM [None]
  - PULSE ABSENT [None]
  - STRESS CARDIOMYOPATHY [None]
  - TORSADE DE POINTES [None]
